FAERS Safety Report 7580036-2 (Version None)
Quarter: 2011Q2

REPORT INFORMATION
  Report Type: 
  Country: None (occurrence: None)
  Receive Date: 20110622
  Receipt Date: 20110607
  Transmission Date: 20111010
  Serious: Yes (Hospitalization, Other)
  Sender: FDA-Public Use
  Company Number: IDA-00554

PATIENT
  Age: 46 Year
  Sex: Male

DRUGS (4)
  1. PROPRANOLOL [Suspect]
     Indication: HYPERTENSION
     Dosage: ORAL FORMULATION: TABLET
     Route: 048
     Dates: start: 20110501
  2. HYDRALAZINE HCL [Suspect]
     Indication: HYPERTENSION
     Dosage: ORAL
     Route: 048
     Dates: start: 20110501
  3. LOSARTAN POTASSIUM [Suspect]
     Indication: HYPERTENSION
     Dosage: ORAL
     Route: 048
     Dates: start: 20110501
  4. ADALAT [Suspect]
     Indication: HYPERTENSION
     Dosage: ORAL
     Route: 048
     Dates: start: 20110501

REACTIONS (2)
  - DRUG INEFFECTIVE [None]
  - BLOOD PRESSURE INADEQUATELY CONTROLLED [None]
